FAERS Safety Report 19313500 (Version 2)
Quarter: 2021Q2

REPORT INFORMATION
  Report Type: Spontaneous
  Country: US (occurrence: US)
  Receive Date: 20210527
  Receipt Date: 20210611
  Transmission Date: 20210717
  Serious: Yes (Life-Threatening, Other)
  Sender: FDA-Public Use
  Company Number: US-009507513-2105USA004917

PATIENT
  Age: 59 Year
  Sex: Male

DRUGS (2)
  1. INTEGRILIN [Suspect]
     Active Substance: EPTIFIBATIDE
     Dosage: BOLUSES, THEN CONTINUES INFUSION
     Route: 042
  2. INTEGRILIN [Suspect]
     Active Substance: EPTIFIBATIDE
     Indication: CORONARY ARTERY OCCLUSION
     Dosage: BOLUSES, THEN CONTINUES INFUSION
     Route: 022

REACTIONS (2)
  - Off label use [Unknown]
  - Thrombocytopenia [Recovered/Resolved]
